FAERS Safety Report 5887289-7 (Version None)
Quarter: 2008Q3

REPORT INFORMATION
  Report Type: 
  Country: None (occurrence: None)
  Receive Date: 20080915
  Receipt Date: 20080903
  Transmission Date: 20090109
  Serious: Yes (Other)
  Sender: FDA-Public Use
  Company Number: 238338J08USA

PATIENT
  Age: 46 Year
  Sex: Female
  Weight: 57.1532 kg

DRUGS (1)
  1. REBIF [Suspect]
     Indication: MULTIPLE SCLEROSIS
     Dosage: 44 MCG, 3 IN 1 WEEKS, SUBCUTANEOUS
     Route: 058
     Dates: start: 20041117, end: 20070901

REACTIONS (2)
  - BREAST CANCER FEMALE [None]
  - NEUTRALISING ANTIBODIES [None]
